FAERS Safety Report 7035209-4 (Version None)
Quarter: 2010Q4

REPORT INFORMATION
  Report Type: 
  Country: None (occurrence: None)
  Receive Date: 20101007
  Receipt Date: 20101007
  Transmission Date: 20110411
  Serious: Yes (Other)
  Sender: FDA-Public Use
  Company Number: None

PATIENT
  Age: 18 Year
  Sex: Female
  Weight: 87.9978 kg

DRUGS (1)
  1. ULTRAM [Suspect]
     Indication: BACK INJURY
     Dosage: 1 TABLET EVERY 6 HOURS PRN PO
     Route: 048
     Dates: start: 20091101, end: 20101002

REACTIONS (6)
  - FACE INJURY [None]
  - FALL [None]
  - GRAND MAL CONVULSION [None]
  - MOUTH INJURY [None]
  - OPEN WOUND [None]
  - TOOTH INJURY [None]
